FAERS Safety Report 23327943 (Version 1)
Quarter: 2023Q4

REPORT INFORMATION
  Report Type: Spontaneous
  Country: US (occurrence: None)
  Receive Date: 20231221
  Receipt Date: 20231221
  Transmission Date: 20240109
  Serious: Yes (Other)
  Sender: FDA-Public Use
  Company Number: None

PATIENT
  Age: 67 Year
  Sex: Female

DRUGS (1)
  1. IBRANCE [Suspect]
     Active Substance: PALBOCICLIB
     Indication: Pleural effusion
     Dosage: OTHER FREQUENCY : FOR 21 D - 7 D OFF;?
     Route: 048

REACTIONS (2)
  - Hip fracture [None]
  - Hip arthroplasty [None]
